FAERS Safety Report 9560249 (Version 1)
Quarter: 2013Q3

REPORT INFORMATION
  Report Type: Spontaneous
  Country: AU (occurrence: AU)
  Receive Date: 20130927
  Receipt Date: 20130927
  Transmission Date: 20140515
  Serious: Yes (Hospitalization, Other)
  Sender: FDA-Public Use
  Company Number: AU-ELI_LILLY_AND_COMPANY-AU201309007507

PATIENT
  Sex: Female
  Weight: 64 kg

DRUGS (2)
  1. ZYPREXA [Suspect]
     Indication: MOOD ALTERED
  2. CRIZOTINIB [Suspect]
     Indication: NON-SMALL CELL LUNG CANCER
     Dosage: 250 MG, BID
     Route: 048
     Dates: start: 201210

REACTIONS (2)
  - Cellulitis [Recovered/Resolved]
  - Oedema peripheral [Recovered/Resolved]
